FAERS Safety Report 9526591 (Version 1)
Quarter: 2013Q3

REPORT INFORMATION
  Report Type: Spontaneous
  Country: US (occurrence: US)
  Receive Date: 20130916
  Receipt Date: 20130916
  Transmission Date: 20140515
  Serious: No
  Sender: FDA-Public Use
  Company Number: US-PFIZER INC-2013262917

PATIENT
  Age: 64 Year
  Sex: Female
  Weight: 90.7 kg

DRUGS (5)
  1. ATORVASTATIN CALCIUM [Suspect]
     Indication: BLOOD CHOLESTEROL INCREASED
     Dosage: 10 MG, 1X/DAY
     Dates: start: 2012, end: 2012
  2. CRESTOR [Suspect]
     Indication: BLOOD CHOLESTEROL INCREASED
     Dosage: 10 MG, 1X/DAY
     Dates: start: 201208
  3. LANTUS [Concomitant]
     Indication: DIABETES MELLITUS
     Dosage: 28 MG, 1X/DAY
  4. HUMALOG [Concomitant]
     Indication: DIABETES MELLITUS
     Dosage: 2MG AT NOON AND 3MG AT NIGHT (2X/DAY)
  5. GLYBURIDE [Concomitant]
     Indication: DIABETES MELLITUS
     Dosage: 10 MG, 3X/DAY

REACTIONS (3)
  - Pain in extremity [Recovered/Resolved]
  - Muscle spasms [Recovered/Resolved]
  - Joint swelling [Recovered/Resolved]
